FAERS Safety Report 7632159-7 (Version None)
Quarter: 2011Q3

REPORT INFORMATION
  Report Type: 
  Country: None (occurrence: None)
  Receive Date: 20110725
  Receipt Date: 20110523
  Transmission Date: 20111222
  Serious: No
  Sender: FDA-Public Use
  Company Number: US-BRISTOL-MYERS SQUIBB COMPANY-15769524

PATIENT
  Age: 75 Year
  Sex: Female

DRUGS (9)
  1. ASPIRIN [Concomitant]
  2. CILOSTAZOL [Concomitant]
  3. FUROSEMIDE [Concomitant]
  4. KLOR-CON [Concomitant]
  5. CRESTOR [Concomitant]
  6. COUMADIN [Suspect]
     Dosage: 1DF:5 MG EVERY DAY EXCEPT FOR MONDAY AND FRIDAY, 2.5 MG ON MONDAY AND FRIDAY.
  7. COREG [Concomitant]
  8. LISINOPRIL [Concomitant]
  9. TEKTURNA [Concomitant]

REACTIONS (1)
  - INTERNATIONAL NORMALISED RATIO FLUCTUATION [None]
